FAERS Safety Report 6613909-5 (Version None)
Quarter: 2010Q1

REPORT INFORMATION
  Report Type: 
  Country: None (occurrence: None)
  Receive Date: 20100304
  Receipt Date: 20100301
  Transmission Date: 20100710
  Serious: Yes (Hospitalization)
  Sender: FDA-Public Use
  Company Number: A0847868A

PATIENT
  Sex: Female

DRUGS (2)
  1. AVANDIA [Suspect]
     Indication: DIABETES MELLITUS
     Dosage: 2MG PER DAY
     Route: 048
  2. AVANDARYL [Suspect]
     Indication: DIABETES MELLITUS
     Route: 048

REACTIONS (3)
  - CEREBROVASCULAR ACCIDENT [None]
  - MYOCARDIAL INFARCTION [None]
  - NEUROPATHY PERIPHERAL [None]
